FAERS Safety Report 10801698 (Version 2)
Quarter: 2020Q3

REPORT INFORMATION
  Report Type: Report from Study
  Country: US (occurrence: US)
  Receive Date: 20150217
  Receipt Date: 20150218
  Transmission Date: 20201104
  Serious: Yes (Other)
  Sender: FDA-Public Use
  Company Number: US-JNJFOC-20150202271

PATIENT
  Age: 55 Year
  Sex: Male

DRUGS (5)
  1. IBRUTINIB [Suspect]
     Active Substance: IBRUTINIB
     Indication: NODAL MARGINAL ZONE B-CELL LYMPHOMA
     Route: 048
     Dates: start: 201412
  2. ASPIRIN. [Concomitant]
     Active Substance: ASPIRIN
  3. LENALIDOMIDE [Suspect]
     Active Substance: LENALIDOMIDE
     Indication: NODAL MARGINAL ZONE B-CELL LYMPHOMA
     Route: 048
     Dates: start: 201412
  4. IBRUTINIB [Suspect]
     Active Substance: IBRUTINIB
     Indication: NODAL MARGINAL ZONE B-CELL LYMPHOMA
     Route: 048
     Dates: start: 20141006, end: 201412
  5. LENALIDOMIDE [Suspect]
     Active Substance: LENALIDOMIDE
     Indication: NODAL MARGINAL ZONE B-CELL LYMPHOMA
     Dosage: CYCLE 1 DAY 1?21, CYCLE2 DAY 1?21
     Route: 048
     Dates: start: 20141006, end: 201412

REACTIONS (1)
  - Alanine aminotransferase increased [Recovered/Resolved]

NARRATIVE: CASE EVENT DATE: 20141215
